FAERS Safety Report 6919580-7 (Version None)
Quarter: 2010Q3

REPORT INFORMATION
  Report Type: 
  Country: None (occurrence: None)
  Receive Date: 20100809
  Receipt Date: 20100722
  Transmission Date: 20110219
  Serious: Yes (Other)
  Sender: FDA-Public Use
  Company Number: PHHY2010AU48915

PATIENT
  Age: 17 Year
  Sex: Female

DRUGS (1)
  1. VISUDYNE [Suspect]
     Indication: HAMARTOMA
     Dates: start: 20030701, end: 20030701

REACTIONS (3)
  - RETINAL OEDEMA [None]
  - VISUAL ACUITY REDUCED [None]
  - VITREOUS DETACHMENT [None]
